FAERS Safety Report 5472091-0 (Version None)
Quarter: 2007Q3

REPORT INFORMATION
  Report Type: 
  Country: None (occurrence: None)
  Receive Date: 20070928
  Receipt Date: 20070916
  Transmission Date: 20080115
  Serious: Yes (Other)
  Sender: FDA-Public Use
  Company Number: AU-PFIZER INC-2007079303

PATIENT
  Age: 70 Year
  Sex: Female
  Weight: 97 kg

DRUGS (12)
  1. METFORMIN HCL [Suspect]
     Indication: DIABETES MELLITUS
  2. SPIRONOLACTONE [Suspect]
  3. FRUSEMIDE [Suspect]
  4. BETA BLOCKING AGENTS [Concomitant]
  5. NSAID'S [Concomitant]
  6. ATORVASTATIN CALCIUM [Concomitant]
  7. INSULINS AND ANALOGUES, LONG-ACTING [Concomitant]
  8. INSULINS AND ANALOGUES,FAST-ACTING [Concomitant]
  9. DRUG USED IN DIABETES [Concomitant]
     Indication: DIABETES MELLITUS
  10. ACARBOSE [Concomitant]
     Indication: DIABETES MELLITUS
  11. CORTICOSTEROIDS [Concomitant]
     Indication: ASTHMA
  12. ALLOPURINOL [Concomitant]

REACTIONS (17)
  - ANKLE FRACTURE [None]
  - ANXIETY [None]
  - ATRIAL FIBRILLATION [None]
  - BLOOD URIC ACID ABNORMAL [None]
  - BRADYCARDIA [None]
  - CARDIOVASCULAR DISORDER [None]
  - DEPRESSION [None]
  - FRACTURED SACRUM [None]
  - GOUT [None]
  - HYPOTENSION [None]
  - NEUROPATHY PERIPHERAL [None]
  - OEDEMA PERIPHERAL [None]
  - OSTEOPOROSIS [None]
  - POLYARTHRITIS [None]
  - RENAL FAILURE [None]
  - SLEEP APNOEA SYNDROME [None]
  - UNEVALUABLE EVENT [None]
